FAERS Safety Report 4595125-4 (Version None)
Quarter: 2005Q1

REPORT INFORMATION
  Report Type: 
  Country: None (occurrence: None)
  Receive Date: 20050223
  Receipt Date: 20050211
  Transmission Date: 20050727
  Serious: Yes (Disabling)
  Sender: FDA-Public Use
  Company Number: HQWYE266711FEB05

PATIENT
  Sex: Female

DRUGS (3)
  1. EFFEXOR XR [Suspect]
     Dosage: 150 MG; 75 MG
     Dates: end: 20050207
  2. EFFEXOR XR [Suspect]
     Dosage: 150 MG; 75 MG
     Dates: start: 20010101
  3. EFFEXOR XR [Suspect]
     Dosage: 150 MG; 75 MG
     Dates: start: 20050208

REACTIONS (3)
  - ACTIVITIES OF DAILY LIVING IMPAIRED [None]
  - DRUG WITHDRAWAL SYNDROME [None]
  - MOOD SWINGS [None]
